FAERS Safety Report 7537311-7 (Version None)
Quarter: 2011Q2

REPORT INFORMATION
  Report Type: 
  Country: None (occurrence: None)
  Receive Date: 20110609
  Receipt Date: 20110606
  Transmission Date: 20111010
  Serious: Yes (Hospitalization)
  Sender: FDA-Public Use
  Company Number: FR-BRISTOL-MYERS SQUIBB COMPANY-15812811

PATIENT
  Age: 59 Year
  Sex: Female

DRUGS (13)
  1. LERCANIDIPINE [Concomitant]
  2. DURAGESIC-100 [Concomitant]
  3. NEXIUM [Concomitant]
     Indication: REGURGITATION
  4. AVASTIN [Suspect]
     Indication: BREAST CANCER
     Route: 042
     Dates: start: 20090529, end: 20091218
  5. CYMBALTA [Concomitant]
  6. TOFRANIL [Concomitant]
  7. BISOPROLOL FUMARATE [Concomitant]
  8. TAXOL [Suspect]
     Indication: BREAST CANCER
     Route: 042
     Dates: start: 20090529, end: 20090824
  9. DEPAMIDE [Concomitant]
  10. IMOVANE [Concomitant]
  11. LEVOTHYROXINE SODIUM [Concomitant]
  12. OXAZEPAM [Concomitant]
  13. ACETAMINOPHEN W/ PROPOXYPHENE HCL [Concomitant]

REACTIONS (2)
  - PROTEINURIA [None]
  - OEDEMA PERIPHERAL [None]
